FAERS Safety Report 15902757 (Version 4)
Quarter: 2024Q2

REPORT INFORMATION
  Report Type: Other
  Country: CZ (occurrence: CZ)
  Receive Date: 20190202
  Receipt Date: 20240411
  Transmission Date: 20240716
  Serious: Yes (Death, Other)
  Sender: FDA-Public Use
  Company Number: CZ-SA-2019SA009371

PATIENT
  Age: 74 Year
  Sex: Male

DRUGS (5)
  1. ERLOTINIB [Suspect]
     Active Substance: ERLOTINIB
     Indication: Lung neoplasm malignant
     Dosage: UNK UNK, UNKNOWN FREQ.
     Route: 065
  2. DOCETAXEL [Suspect]
     Active Substance: DOCETAXEL\DOCETAXEL ANHYDROUS
     Indication: Lung neoplasm malignant
     Route: 042
     Dates: start: 201410, end: 201502
  3. NINTEDANIB [Suspect]
     Active Substance: NINTEDANIB
     Indication: Lung neoplasm malignant
     Route: 048
     Dates: start: 201410, end: 201502
  4. CISPLATIN [Suspect]
     Active Substance: CISPLATIN
     Indication: Adenocarcinoma
     Dosage: UNK UNK, CYCLIC
     Route: 065
  5. PEMETREXED [Suspect]
     Active Substance: PEMETREXED
     Indication: Adenocarcinoma
     Dosage: UNK UNK, CYCLIC
     Route: 065
     Dates: start: 201405

REACTIONS (7)
  - Malignant neoplasm progression [Fatal]
  - Infection [Fatal]
  - Neutropenia [Unknown]
  - Myelosuppression [Unknown]
  - Condition aggravated [Unknown]
  - Anaemia [Unknown]
  - Drug ineffective [Unknown]

NARRATIVE: CASE EVENT DATE: 20141001
